FAERS Safety Report 6106613-3 (Version None)
Quarter: 2009Q1

REPORT INFORMATION
  Report Type: 
  Country: None (occurrence: None)
  Receive Date: 20090306
  Receipt Date: 20090225
  Transmission Date: 20090719
  Serious: Yes (Other)
  Sender: FDA-Public Use
  Company Number: US-JNJCH-2009005698

PATIENT
  Age: 68 Year
  Sex: Female
  Weight: 81.2 kg

DRUGS (2)
  1. ROGAINE [Suspect]
     Indication: ALOPECIA
     Dosage: TEXT:UNSPECIFIED EVERY 12 HOURS
     Route: 061
     Dates: start: 20090131, end: 20090219
  2. TOPROL-XL [Concomitant]
     Indication: BLOOD PRESSURE
     Dosage: DAILY DOSE:50MG-TEXT:50MG UNSPECIFIED
     Route: 048

REACTIONS (3)
  - ARTERIAL OCCLUSIVE DISEASE [None]
  - GLAUCOMA [None]
  - OFF LABEL USE [None]
